FAERS Safety Report 7104775-2 (Version None)
Quarter: 2010Q4

REPORT INFORMATION
  Report Type: 
  Country: None (occurrence: None)
  Receive Date: 20101109
  Receipt Date: 20101101
  Transmission Date: 20110411
  Serious: Yes (Other)
  Sender: FDA-Public Use
  Company Number: 20109559

PATIENT
  Sex: Male
  Weight: 68.2 kg

DRUGS (7)
  1. BACLOFEN [Suspect]
     Indication: MUSCLE SPASTICITY
     Dosage: SCREENING DOSE
     Route: 037
  2. ACTOS [Concomitant]
  3. MICARDIS [Concomitant]
  4. PLAVIX [Concomitant]
  5. PRAVASTATIN [Concomitant]
  6. URIEF [Concomitant]
  7. DETRUSITOL [Concomitant]

REACTIONS (2)
  - DYSURIA [None]
  - URINARY RETENTION [None]
